FAERS Safety Report 5304890-X (Version None)
Quarter: 2007Q2

REPORT INFORMATION
  Report Type: 
  Country: None (occurrence: None)
  Receive Date: 20070417
  Receipt Date: 20070316
  Transmission Date: 20071010
  Serious: Yes (Other)
  Sender: FDA-Public Use
  Company Number: 2007SP000817

PATIENT
  Age: 55 Year
  Sex: Female
  Weight: 92.5338 kg

DRUGS (4)
  1. CLARITIN-D [Suspect]
     Indication: NASOPHARYNGITIS
     Dosage: 1 DF; ONCE; PO
     Route: 048
     Dates: start: 20070105, end: 20070105
  2. CLARITIN-D [Suspect]
     Indication: RHINORRHOEA
     Dosage: 1 DF; ONCE; PO
     Route: 048
     Dates: start: 20070105, end: 20070105
  3. DEPAKOTE [Concomitant]
  4. HALDOL [Concomitant]

REACTIONS (9)
  - ASTHENIA [None]
  - DEHYDRATION [None]
  - DISORIENTATION [None]
  - INTENTIONAL DRUG MISUSE [None]
  - MEDICATION ERROR [None]
  - MEMORY IMPAIRMENT [None]
  - NAUSEA [None]
  - PYREXIA [None]
  - TACHYCARDIA [None]
